FAERS Safety Report 4629488-8 (Version None)
Quarter: 2005Q2

REPORT INFORMATION
  Report Type: 
  Country: None (occurrence: None)
  Receive Date: 20050405
  Receipt Date: 20050321
  Transmission Date: 20051028
  Serious: Yes (Hospitalization)
  Sender: FDA-Public Use
  Company Number: 2005BI001531

PATIENT
  Age: 47 Year
  Sex: Female
  Weight: 66 kg

DRUGS (1)
  1. AVONEX [Suspect]
     Indication: MULTIPLE SCLEROSIS
     Dosage: 30 UG; QW; IM
     Route: 030
     Dates: start: 19990101

REACTIONS (3)
  - HYPOTHYROIDISM [None]
  - MULTIPLE SCLEROSIS RELAPSE [None]
  - MUSCULOSKELETAL STIFFNESS [None]
